FAERS Safety Report 20582906 (Version 3)
Quarter: 2022Q2

REPORT INFORMATION
  Report Type: Report from Study
  Country: JP (occurrence: JP)
  Receive Date: 20220311
  Receipt Date: 20220621
  Transmission Date: 20220721
  Serious: Yes (Death)
  Sender: FDA-Public Use
  Company Number: JP-MSD-2203JPN000749J

PATIENT
  Age: 9 Decade
  Sex: Male
  Weight: 37 kg

DRUGS (4)
  1. CILASTATIN\IMIPENEM\RELEBACTAM MONOHYDRATE [Suspect]
     Active Substance: CILASTATIN\IMIPENEM\RELEBACTAM MONOHYDRATE
     Indication: Pneumonia pseudomonal
     Dosage: 1 GRAM, QID
     Route: 041
     Dates: start: 20211112, end: 20211119
  2. MOXALACTAM DISODIUM [Concomitant]
     Active Substance: MOXALACTAM DISODIUM
     Indication: Pneumonia
     Dosage: 1 GRAM, BID
     Route: 041
     Dates: start: 20211026, end: 20211105
  3. CEFOPERAZONE SODIUM\SULBACTAM SODIUM [Concomitant]
     Active Substance: CEFOPERAZONE SODIUM\SULBACTAM SODIUM
     Indication: Pneumonia
     Dosage: 1 GRAM, BID
     Route: 051
     Dates: start: 20211106, end: 20211111
  4. EXACIN [ISEPAMICIN SULFATE] [Concomitant]
     Indication: Pneumonia
     Dosage: 400 MILLIGRAM, QD
     Route: 041
     Dates: start: 20211106, end: 20211111

REACTIONS (3)
  - Marasmus [Fatal]
  - Hepatic function abnormal [Recovering/Resolving]
  - Overdose [Unknown]

NARRATIVE: CASE EVENT DATE: 20211112
